FAERS Safety Report 6014736-2 (Version None)
Quarter: 2008Q4

REPORT INFORMATION
  Report Type: 
  Country: None (occurrence: None)
  Receive Date: 20081126
  Receipt Date: 20080125
  Transmission Date: 20090506
  Serious: Yes (Hospitalization, Other)
  Sender: FDA-Public Use
  Company Number: 161381USA

PATIENT
  Age: 86 Year
  Sex: Female

DRUGS (1)
  1. CARBOPLATIN [Suspect]
     Indication: OVARIAN CANCER
     Dosage: (150 MG)
     Dates: start: 20070821, end: 20070828

REACTIONS (1)
  - ANAPHYLACTIC REACTION [None]
